FAERS Safety Report 23027897 (Version 1)
Quarter: 2023Q4

REPORT INFORMATION
  Report Type: Spontaneous
  Country: US (occurrence: None)
  Receive Date: 20231004
  Receipt Date: 20231004
  Transmission Date: 20240110
  Serious: Yes (Other)
  Sender: FDA-Public Use
  Company Number: None

PATIENT
  Sex: Female

DRUGS (9)
  1. DIMETHYL FUMARATE [Suspect]
     Active Substance: DIMETHYL FUMARATE
     Indication: Multiple sclerosis
     Dosage: FREQUENCY : AS DIRECTED;?
     Route: 048
     Dates: start: 20201124
  2. DIMETHYL FUMARATE [Suspect]
     Active Substance: DIMETHYL FUMARATE
     Dosage: FREQUENCY : AS DIRECTED;?
     Route: 048
  3. AMLODIPINE [Concomitant]
  4. BACLOFEN [Concomitant]
  5. LIPITOR [Concomitant]
     Active Substance: ATORVASTATIN CALCIUM
  6. MULTIVITAMIN [Concomitant]
  7. QUETIAPINE [Concomitant]
     Active Substance: QUETIAPINE
  8. SILENOR [Concomitant]
     Active Substance: DOXEPIN HYDROCHLORIDE
  9. VOLTAREN [Concomitant]
     Active Substance: DICLOFENAC SODIUM

REACTIONS (1)
  - Throat cancer [None]
